FAERS Safety Report 6579054-2 (Version None)
Quarter: 2010Q1

REPORT INFORMATION
  Report Type: 
  Country: None (occurrence: None)
  Receive Date: 20100212
  Receipt Date: 20100203
  Transmission Date: 20100710
  Serious: Yes (Hospitalization, Other)
  Sender: FDA-Public Use
  Company Number: PHEH2010US01928

PATIENT
  Age: 12 Year
  Sex: Male

DRUGS (3)
  1. FOCALIN [Suspect]
  2. ADDERALL 30 [Suspect]
  3. METADATE CD [Suspect]

REACTIONS (3)
  - AKATHISIA [None]
  - DRUG INEFFECTIVE [None]
  - MUSCLE RIGIDITY [None]
